FAERS Safety Report 23845301 (Version 1)
Quarter: 2024Q2

REPORT INFORMATION
  Report Type: Spontaneous
  Country: US (occurrence: US)
  Receive Date: 20240511
  Receipt Date: 20240511
  Transmission Date: 20240716
  Serious: No
  Sender: FDA-Public Use
  Company Number: US-002147023-NVSC2023US113162

PATIENT
  Sex: Female

DRUGS (7)
  1. COSENTYX [Suspect]
     Active Substance: SECUKINUMAB
     Indication: Psoriatic arthropathy
     Dosage: 300 MG
     Route: 058
  2. METFORMIN [Suspect]
     Active Substance: METFORMIN HYDROCHLORIDE
     Indication: Psoriatic arthropathy
     Dosage: 750 MG
     Route: 048
  3. METHOTREXATE [Suspect]
     Active Substance: METHOTREXATE
     Indication: Psoriatic arthropathy
     Dosage: 25 MILLIGRAM PER MILLILITRE
     Route: 042
  4. PATANOL [Suspect]
     Active Substance: OLOPATADINE HYDROCHLORIDE
     Indication: Psoriatic arthropathy
     Dosage: 0.1 %
     Route: 065
  5. TRAZODONE [Suspect]
     Active Substance: TRAZODONE HYDROCHLORIDE
     Indication: Psoriatic arthropathy
     Dosage: 50 MG
     Route: 048
  6. VALSARTAN [Suspect]
     Active Substance: VALSARTAN
     Indication: Psoriatic arthropathy
     Dosage: 80 MG
     Route: 048
  7. WELLBUTRIN [Suspect]
     Active Substance: BUPROPION HYDROCHLORIDE
     Indication: Psoriatic arthropathy
     Dosage: 150 MG
     Route: 048

REACTIONS (1)
  - Drug ineffective [Unknown]
